FAERS Safety Report 23293914 (Version 1)
Quarter: 2023Q4

REPORT INFORMATION
  Report Type: Report from Study
  Country: US (occurrence: US)
  Receive Date: 20231213
  Receipt Date: 20231213
  Transmission Date: 20240110
  Serious: Yes (Hospitalization, Other)
  Sender: FDA-Public Use
  Company Number: US-GILEAD-2023-0654503

PATIENT
  Age: 67 Year
  Sex: Female

DRUGS (4)
  1. AZTREONAM LYSINE [Suspect]
     Active Substance: AZTREONAM LYSINE
     Indication: Product used for unknown indication
     Dosage: 75 MG, TID (75 MG VIA ALTERA NEBULIZER THREE TIMES DAILY FOR 14 DAYS ON 14 DAYS OFF)
     Route: 055
  2. GENTAMICIN [Concomitant]
     Active Substance: GENTAMICIN
  3. RAPAMUNE [Concomitant]
     Active Substance: SIROLIMUS
  4. PANTOPRAZOLE [Concomitant]
     Active Substance: PANTOPRAZOLE
     Dosage: UNK

REACTIONS (2)
  - Pneumonia [Not Recovered/Not Resolved]
  - Off label use [Unknown]

NARRATIVE: CASE EVENT DATE: 20231205
